FAERS Safety Report 6335276-7 (Version None)
Quarter: 2009Q3

REPORT INFORMATION
  Report Type: 
  Country: None (occurrence: None)
  Receive Date: 20090831
  Receipt Date: 20090827
  Transmission Date: 20100115
  Serious: Yes (Disabling)
  Sender: FDA-Public Use
  Company Number: NO-BRISTOL-MYERS SQUIBB COMPANY-14756837

PATIENT
  Age: 39 Year
  Sex: Male

DRUGS (1)
  1. COAPROVEL [Suspect]
     Indication: HYPERTENSION
     Dosage: COAPROVEL (IRBESARTAN 300MG + HYDROCHLORTIAZIDE 25MG)
     Route: 048
     Dates: start: 20080101, end: 20090801

REACTIONS (2)
  - BLOOD TRIGLYCERIDES INCREASED [None]
  - FATIGUE [None]
